FAERS Safety Report 9114969 (Version 1)
Quarter: 2013Q1

REPORT INFORMATION
  Report Type: Spontaneous
  Country: US (occurrence: None)
  Receive Date: 20130220
  Receipt Date: 20130220
  Transmission Date: 20140127
  Serious: Yes (Life-Threatening, Other)
  Sender: FDA-Public Use
  Company Number: None

PATIENT
  Sex: Male
  Weight: 75 kg

DRUGS (14)
  1. CYMBALTA [Suspect]
     Indication: FIBROMYALGIA
     Dosage: 30MG.CYMBALTA  1  ORAL
     Route: 048
  2. CYMBALTA [Suspect]
     Indication: OSTEOARTHRITIS
     Dosage: 30MG.CYMBALTA  1  ORAL
     Route: 048
  3. CYMBALTA [Suspect]
     Indication: MERALGIA PARAESTHETICA
     Dosage: 30MG.CYMBALTA  1  ORAL
     Route: 048
  4. CYMBALTA [Suspect]
     Indication: FOOT FRACTURE
     Dosage: 30MG.CYMBALTA  1  ORAL
     Route: 048
  5. LYRICA [Suspect]
     Indication: DEPRESSION
     Dosage: 100MG.LYRICA  1   ORAL
     Route: 048
  6. LYRICA [Suspect]
     Indication: ANXIETY
     Dosage: 100MG.LYRICA  1   ORAL
     Route: 048
  7. LYRICA [Suspect]
     Indication: RHEUMATOID ARTHRITIS
     Dosage: 100MG.LYRICA  1   ORAL
     Route: 048
  8. LYRICA [Suspect]
     Indication: GASTROOESOPHAGEAL REFLUX DISEASE
     Dosage: 100MG.LYRICA  1   ORAL
     Route: 048
  9. LYRICA [Suspect]
     Indication: HYPERTENSION
     Dosage: 100MG.LYRICA  1   ORAL
     Route: 048
  10. HYDROCODONE [Suspect]
     Indication: DEPRESSION
     Dosage: HYDROCODONE.5/500  8   ORAL
     Route: 048
  11. HYDROCODONE [Suspect]
     Indication: ANXIETY
     Dosage: HYDROCODONE.5/500  8   ORAL
     Route: 048
  12. HYDROCODONE [Suspect]
     Indication: RHEUMATOID ARTHRITIS
     Dosage: HYDROCODONE.5/500  8   ORAL
     Route: 048
  13. HYDROCODONE [Suspect]
     Indication: GASTROOESOPHAGEAL REFLUX DISEASE
     Dosage: HYDROCODONE.5/500  8   ORAL
     Route: 048
  14. HYDROCODONE [Suspect]
     Indication: HYPERTENSION
     Dosage: HYDROCODONE.5/500  8   ORAL
     Route: 048

REACTIONS (11)
  - Aggression [None]
  - Loss of employment [None]
  - Screaming [None]
  - Disturbance in attention [None]
  - Amnesia [None]
  - Vision blurred [None]
  - Weight decreased [None]
  - Anger [None]
  - Suicidal ideation [None]
  - Social problem [None]
  - Fatigue [None]
